FAERS Safety Report 8632041 (Version 2)
Quarter: 2013Q1

REPORT INFORMATION
  Report Type: Spontaneous
  Country: FR (occurrence: FR)
  Receive Date: 20120625
  Receipt Date: 20130205
  Transmission Date: 20140127
  Serious: Yes (Other)
  Sender: FDA-Public Use
  Company Number: PHHY2012FR016010

PATIENT
  Age: 41 Year
  Sex: Female

DRUGS (6)
  1. EXTAVIA [Suspect]
     Indication: MULTIPLE SCLEROSIS
     Dosage: 1 ML, EVERY 4 DAYS
  2. EXTAVIA [Suspect]
     Dosage: 1 INJECTION PER WEEK
  3. ADVIL [Concomitant]
  4. DOLIPRANE [Concomitant]
  5. IXPRIM [Concomitant]
  6. ZOPICLONE [Concomitant]

REACTIONS (11)
  - Angina pectoris [Not Recovered/Not Resolved]
  - Limb discomfort [Unknown]
  - Gait disturbance [Unknown]
  - Pain in extremity [Unknown]
  - Neck pain [Unknown]
  - Back pain [Unknown]
  - Nervousness [Not Recovered/Not Resolved]
  - Vision blurred [Not Recovered/Not Resolved]
  - Nausea [Unknown]
  - Headache [Not Recovered/Not Resolved]
  - Inappropriate schedule of drug administration [Not Recovered/Not Resolved]
